FAERS Safety Report 6978423-6 (Version None)
Quarter: 2010Q3

REPORT INFORMATION
  Report Type: 
  Country: None (occurrence: None)
  Receive Date: 20100913
  Receipt Date: 20100906
  Transmission Date: 20110219
  Serious: Yes (Other)
  Sender: FDA-Public Use
  Company Number: NL-BRISTOL-MYERS SQUIBB COMPANY-15273014

PATIENT
  Age: 71 Year
  Sex: Female
  Weight: 73 kg

DRUGS (3)
  1. ORENCIA [Suspect]
     Dosage: LAST INFUSION 13JUL2010
     Route: 042
     Dates: start: 20091016, end: 20100713
  2. DICLOFENAC [Concomitant]
  3. OMEPRAZOLE [Concomitant]

REACTIONS (4)
  - DYSPHAGIA [None]
  - FACIAL PAIN [None]
  - SWELLING FACE [None]
  - VITILIGO [None]
